FAERS Safety Report 7313451-2 (Version None)
Quarter: 2011Q1

REPORT INFORMATION
  Report Type: 
  Country: None (occurrence: None)
  Receive Date: 20110225
  Receipt Date: 20110220
  Transmission Date: 20110831
  Serious: No
  Sender: FDA-Public Use
  Company Number: US-PFIZER INC-2011037308

PATIENT
  Sex: Female
  Weight: 58 kg

DRUGS (1)
  1. DILANTIN [Suspect]
     Indication: CONVULSION
     Dosage: 300 MG, 1X/DAY
     Route: 048
     Dates: start: 20110201

REACTIONS (7)
  - PRURITUS [None]
  - BACK PAIN [None]
  - FATIGUE [None]
  - CHEST PAIN [None]
  - HEADACHE [None]
  - SEDATION [None]
  - DIZZINESS [None]
